FAERS Safety Report 4478864-5 (Version None)
Quarter: 2004Q4

REPORT INFORMATION
  Report Type: 
  Country: None (occurrence: None)
  Receive Date: 20041019
  Receipt Date: 20041012
  Transmission Date: 20050328
  Serious: Yes (Hospitalization)
  Sender: FDA-Public Use
  Company Number: PHEH2004US11043

PATIENT
  Age: 43 Year
  Sex: Female
  Weight: 73 kg

DRUGS (11)
  1. ZELNORM [Suspect]
     Dosage: 6 MG, BID
     Route: 048
     Dates: start: 20031001, end: 20041002
  2. OXYBUTYNIN [Concomitant]
  3. LEXAPRO [Concomitant]
  4. RANITIDINE [Concomitant]
  5. NEURONTIN [Concomitant]
  6. COLACE [Concomitant]
  7. CLONIDINE HCL [Concomitant]
  8. OXYCODONE HCL [Concomitant]
  9. ZOFRAN [Concomitant]
  10. LORTAB [Concomitant]
  11. HYDROXYZINE [Concomitant]

REACTIONS (2)
  - ALANINE AMINOTRANSFERASE INCREASED [None]
  - ASPARTATE AMINOTRANSFERASE INCREASED [None]
